FAERS Safety Report 12469689 (Version 1)
Quarter: 2016Q2

REPORT INFORMATION
  Report Type: Spontaneous
  Country: HK (occurrence: CN)
  Receive Date: 20160615
  Receipt Date: 20160615
  Transmission Date: 20160815
  Serious: Yes (Other)
  Sender: FDA-Public Use
  Company Number: HK-BRISTOL-MYERS SQUIBB COMPANY-BMS-2016-044855

PATIENT
  Sex: Male
  Weight: 70 kg

DRUGS (2)
  1. OPDIVO [Suspect]
     Active Substance: NIVOLUMAB
     Indication: BILE DUCT CANCER
     Dosage: 200 MG, Q2WK
     Route: 065
  2. OPDIVO [Suspect]
     Active Substance: NIVOLUMAB
     Indication: HEPATIC CANCER
     Dosage: 140 MG, Q2WK
     Route: 065

REACTIONS (7)
  - Thoracic cavity drainage [Unknown]
  - Asthenia [Unknown]
  - Off label use [Unknown]
  - Constipation [Unknown]
  - Back pain [Unknown]
  - Product use issue [Unknown]
  - Pleural effusion [Unknown]
